FAERS Safety Report 5752203-1 (Version None)
Quarter: 2008Q2

REPORT INFORMATION
  Report Type: 
  Country: None (occurrence: None)
  Receive Date: 20080529
  Receipt Date: 20080527
  Transmission Date: 20081010
  Serious: Yes (Other)
  Sender: FDA-Public Use
  Company Number: US-ELI_LILLY_AND_COMPANY-US200805005395

PATIENT
  Sex: Male

DRUGS (3)
  1. HUMALOG [Suspect]
     Indication: TYPE 2 DIABETES MELLITUS
     Dosage: UNK, UNK
     Dates: start: 20020101
  2. HUMULIN 70/30 [Suspect]
     Indication: TYPE 2 DIABETES MELLITUS
     Dates: start: 20080517, end: 20080525
  3. LANTUS [Concomitant]
     Indication: DIABETES MELLITUS
     Dosage: 46 U, AT BEDTIME

REACTIONS (5)
  - BLOOD GLUCOSE INCREASED [None]
  - HEADACHE [None]
  - HYPERHIDROSIS [None]
  - PANCREATITIS [None]
  - WRONG DRUG ADMINISTERED [None]
